FAERS Safety Report 4379846-4 (Version None)
Quarter: 2004Q2

REPORT INFORMATION
  Report Type: 
  Country: None (occurrence: None)
  Receive Date: 20040614
  Receipt Date: 20040604
  Transmission Date: 20050107
  Serious: Yes (Death)
  Sender: FDA-Public Use
  Company Number: RB-737-2004

PATIENT
  Age: 91 Year
  Sex: Male

DRUGS (1)
  1. BUPRENORPHINE HCL [Suspect]
     Dosage: SL
     Route: 060
     Dates: start: 20031201, end: 20031201

REACTIONS (2)
  - INJURY [None]
  - MEDICATION ERROR [None]
